FAERS Safety Report 5947769-2 (Version None)
Quarter: 2008Q4

REPORT INFORMATION
  Report Type: 
  Country: None (occurrence: None)
  Receive Date: 20081111
  Receipt Date: 20081104
  Transmission Date: 20090506
  Serious: Yes (Other)
  Sender: FDA-Public Use
  Company Number: US-JNJFOC-20081101256

PATIENT
  Age: 87 Year
  Sex: Male

DRUGS (2)
  1. LEVAQUIN [Suspect]
     Indication: IMPAIRED HEALING
     Route: 048
  2. GLIPIZIDE [Concomitant]
     Indication: DIABETES MELLITUS
     Route: 065

REACTIONS (3)
  - BLOOD GLUCOSE DECREASED [None]
  - HEMIPARESIS [None]
  - PARAESTHESIA [None]
